FAERS Safety Report 18809574 (Version 7)
Quarter: 2021Q1

REPORT INFORMATION
  Report Type: Report from Study
  Country: US (occurrence: US)
  Receive Date: 20210129
  Receipt Date: 20210326
  Transmission Date: 20210419
  Serious: Yes (Other)
  Sender: FDA-Public Use
  Company Number: US-PFIZER INC-2020226407

PATIENT
  Age: 75 Year
  Sex: Female

DRUGS (1)
  1. XELJANZ XR [Suspect]
     Active Substance: TOFACITINIB CITRATE
     Dosage: 11 MG, 1X/DAY
     Route: 048
     Dates: start: 202005

REACTIONS (28)
  - Rash papular [Unknown]
  - Arthralgia [Unknown]
  - Peripheral swelling [Unknown]
  - Inflammation [Unknown]
  - Depressed mood [Recovering/Resolving]
  - Energy increased [Unknown]
  - Rash [Unknown]
  - Skin disorder [Unknown]
  - Epistaxis [Unknown]
  - Impaired healing [Unknown]
  - Malaise [Unknown]
  - Arthralgia [Unknown]
  - Nasopharyngitis [Unknown]
  - Joint swelling [Unknown]
  - Mental fatigue [Unknown]
  - Sneezing [Unknown]
  - Pain [Not Recovered/Not Resolved]
  - Rheumatoid arthritis [Unknown]
  - Tooth disorder [Unknown]
  - Rash macular [Unknown]
  - Pain in extremity [Unknown]
  - Stress [Unknown]
  - Haematochezia [Unknown]
  - Device physical property issue [Unknown]
  - Dizziness [Unknown]
  - Depression [Recovered/Resolved]
  - Fatigue [Unknown]
  - Insomnia [Unknown]

NARRATIVE: CASE EVENT DATE: 2020
